FAERS Safety Report 20207646 (Version 3)
Quarter: 2022Q3

REPORT INFORMATION
  Report Type: Spontaneous
  Country: CA (occurrence: CA)
  Receive Date: 20211220
  Receipt Date: 20220715
  Transmission Date: 20221026
  Serious: Yes (Other)
  Sender: FDA-Public Use
  Company Number: CA-PFIZER INC-202101206122

PATIENT
  Age: 60 Year
  Sex: Male

DRUGS (2)
  1. INLYTA [Suspect]
     Active Substance: AXITINIB
     Indication: Metastatic renal cell carcinoma
     Dosage: 5 MG, 1 TABLET, TWICE DAILY FOR 21 DAYS
     Route: 048
     Dates: start: 20210929
  2. KEYTRUDA [Concomitant]
     Active Substance: PEMBROLIZUMAB
     Dosage: UNK

REACTIONS (3)
  - Liver disorder [Unknown]
  - Neoplasm progression [Unknown]
  - Memory impairment [Unknown]
